FAERS Safety Report 10172068 (Version 1)
Quarter: 2014Q2

REPORT INFORMATION
  Report Type: Spontaneous
  Country: US (occurrence: US)
  Receive Date: 20140515
  Receipt Date: 20140515
  Transmission Date: 20141212
  Serious: No
  Sender: FDA-Public Use
  Company Number: US-009507513-1405USA005656

PATIENT
  Sex: Female

DRUGS (1)
  1. VYTORIN [Suspect]
     Indication: BLOOD CHOLESTEROL INCREASED
     Dosage: 10/10 MG, QD
     Route: 048
     Dates: start: 201403

REACTIONS (3)
  - Low density lipoprotein decreased [Unknown]
  - Blood triglycerides increased [Unknown]
  - High density lipoprotein increased [Unknown]
